FAERS Safety Report 25311712 (Version 1)
Quarter: 2025Q2

REPORT INFORMATION
  Report Type: Spontaneous
  Country: US (occurrence: US)
  Receive Date: 20250514
  Receipt Date: 20250514
  Transmission Date: 20250717
  Serious: Yes (Other)
  Sender: STRIDES
  Company Number: US-MLMSERVICE-20250418-PI485294-00117-1

PATIENT
  Age: 67 Year
  Sex: Male

DRUGS (32)
  1. LEVETIRACETAM [Suspect]
     Active Substance: LEVETIRACETAM
     Indication: Immune-mediated encephalopathy
     Route: 065
  2. BPX 603 [Concomitant]
     Indication: Hormone-refractory prostate cancer
     Route: 041
  3. BPX 603 [Concomitant]
     Indication: Prostate cancer metastatic
  4. RIMIDUCID [Concomitant]
     Active Substance: RIMIDUCID
     Indication: Hormone-refractory prostate cancer
     Route: 041
  5. RIMIDUCID [Concomitant]
     Active Substance: RIMIDUCID
     Indication: Prostate cancer metastatic
  6. TOCILIZUMAB [Concomitant]
     Active Substance: TOCILIZUMAB
     Indication: Cytokine release syndrome
     Route: 065
  7. DEXAMETHASONE [Concomitant]
     Active Substance: DEXAMETHASONE
     Indication: Cytokine release syndrome
     Route: 065
  8. DEXAMETHASONE [Concomitant]
     Active Substance: DEXAMETHASONE
     Route: 065
  9. NOREPINEPHRINE [Concomitant]
     Active Substance: NOREPINEPHRINE
     Indication: Cytokine release syndrome
     Route: 041
  10. NOREPINEPHRINE [Concomitant]
     Active Substance: NOREPINEPHRINE
     Route: 041
  11. VASOPRESSIN [Concomitant]
     Active Substance: VASOPRESSIN
     Indication: Cytokine release syndrome
     Route: 065
  12. PHENYLEPHRINE [Concomitant]
     Active Substance: PHENYLEPHRINE
     Indication: Cytokine release syndrome
     Route: 065
  13. SILTUXIMAB [Concomitant]
     Active Substance: SILTUXIMAB
     Indication: Cytokine release syndrome
     Route: 065
  14. METHYLPREDNISOLONE [Concomitant]
     Active Substance: METHYLPREDNISOLONE
     Indication: Cytokine release syndrome
     Route: 065
  15. ANAKINRA [Concomitant]
     Active Substance: ANAKINRA
     Indication: Cytokine release syndrome
     Route: 065
  16. RUXOLITINIB [Concomitant]
     Active Substance: RUXOLITINIB
     Indication: Cytokine release syndrome
     Route: 065
  17. ANGIOTENSIN II [Concomitant]
     Active Substance: ANGIOTENSIN II
     Indication: Cytokine release syndrome
     Route: 065
  18. DEGARELIX [Concomitant]
     Active Substance: DEGARELIX
     Indication: Hormone-refractory prostate cancer
     Route: 065
  19. DEGARELIX [Concomitant]
     Active Substance: DEGARELIX
     Indication: Prostate cancer metastatic
  20. LEUPROLIDE [Concomitant]
     Active Substance: LEUPROLIDE
     Indication: Hormone-refractory prostate cancer
     Route: 065
  21. LEUPROLIDE [Concomitant]
     Active Substance: LEUPROLIDE
     Indication: Prostate cancer metastatic
  22. APALUTAMIDE [Concomitant]
     Active Substance: APALUTAMIDE
     Indication: Hormone-refractory prostate cancer
     Route: 065
  23. APALUTAMIDE [Concomitant]
     Active Substance: APALUTAMIDE
     Indication: Prostate cancer metastatic
  24. OLAPARIB [Concomitant]
     Active Substance: OLAPARIB
     Indication: Hormone-refractory prostate cancer
     Route: 065
  25. OLAPARIB [Concomitant]
     Active Substance: OLAPARIB
     Indication: Prostate cancer metastatic
  26. DOCETAXEL [Concomitant]
     Active Substance: DOCETAXEL
     Indication: Hormone-refractory prostate cancer
     Route: 065
  27. DOCETAXEL [Concomitant]
     Active Substance: DOCETAXEL
     Indication: Prostate cancer metastatic
  28. FLUDARABINE [Concomitant]
     Active Substance: FLUDARABINE PHOSPHATE
     Indication: Hormone-refractory prostate cancer
     Route: 065
  29. FLUDARABINE [Concomitant]
     Active Substance: FLUDARABINE PHOSPHATE
     Indication: Prostate cancer metastatic
  30. CYCLOPHOSPHAMIDE [Concomitant]
     Active Substance: CYCLOPHOSPHAMIDE
     Indication: Hormone-refractory prostate cancer
     Route: 065
  31. CYCLOPHOSPHAMIDE [Concomitant]
     Active Substance: CYCLOPHOSPHAMIDE
     Indication: Prostate cancer metastatic
  32. GAMIFANT [Concomitant]
     Active Substance: EMAPALUMAB-LZSG
     Indication: Cytokine release syndrome
     Route: 065

REACTIONS (2)
  - Disease progression [Unknown]
  - Off label use [Unknown]
